FAERS Safety Report 15256250 (Version 1)
Quarter: 2018Q3

REPORT INFORMATION
  Report Type: Spontaneous
  Country: US (occurrence: US)
  Receive Date: 20180808
  Receipt Date: 20180808
  Transmission Date: 20181010
  Serious: No
  Sender: FDA-Public Use
  Company Number: US-GLAXOSMITHKLINE-US2018GSK133050

PATIENT
  Age: 35 Year
  Sex: Female

DRUGS (7)
  1. REXULTI [Suspect]
     Active Substance: BREXPIPRAZOLE
     Dosage: UNK
  2. CRESTOR [Concomitant]
     Active Substance: ROSUVASTATIN CALCIUM
  3. REXULTI [Suspect]
     Active Substance: BREXPIPRAZOLE
     Dosage: 1 MG, UNK
  4. LAMICTAL [Suspect]
     Active Substance: LAMOTRIGINE
     Indication: PRODUCT USED FOR UNKNOWN INDICATION
     Dosage: UNK, U
  5. REXULTI [Suspect]
     Active Substance: BREXPIPRAZOLE
     Indication: BIPOLAR DISORDER
     Dosage: 2 MG, U
     Dates: start: 2017
  6. WELLBUTRIN [Suspect]
     Active Substance: BUPROPION HYDROCHLORIDE
     Indication: PRODUCT USED FOR UNKNOWN INDICATION
  7. LATUDA [Suspect]
     Active Substance: LURASIDONE HYDROCHLORIDE
     Indication: PRODUCT USED FOR UNKNOWN INDICATION
     Dosage: UNK UNK, U

REACTIONS (12)
  - Weight increased [Not Recovered/Not Resolved]
  - Drug effect incomplete [Unknown]
  - Depression [Unknown]
  - Loss of personal independence in daily activities [Unknown]
  - Irritability [Unknown]
  - Blood cholesterol increased [Unknown]
  - Panic attack [Unknown]
  - Adverse drug reaction [Unknown]
  - Anger [Unknown]
  - Depressed mood [Unknown]
  - Emotional distress [Unknown]
  - Hunger [Unknown]
